FAERS Safety Report 12968536 (Version 1)
Quarter: 2016Q4

REPORT INFORMATION
  Report Type: Spontaneous
  Country: US (occurrence: US)
  Receive Date: 20161123
  Receipt Date: 20161123
  Transmission Date: 20170207
  Serious: No
  Sender: FDA-Public Use
  Company Number: US-GALDERMA-US16004223

PATIENT
  Sex: Female

DRUGS (1)
  1. METRONIDAZOLE CREAM (METRONIDAZOLE) 0.75% [Suspect]
     Active Substance: METRONIDAZOLE
     Indication: VAGINAL DISORDER
     Dosage: 0.75%
     Route: 067
     Dates: start: 20160614, end: 20160614

REACTIONS (2)
  - Drug dispensing error [Recovered/Resolved]
  - Drug administered at inappropriate site [Recovered/Resolved]

NARRATIVE: CASE EVENT DATE: 20160614
